FAERS Safety Report 7033493-4 (Version None)
Quarter: 2010Q4

REPORT INFORMATION
  Report Type: 
  Country: None (occurrence: None)
  Receive Date: 20101007
  Receipt Date: 20100922
  Transmission Date: 20110411
  Serious: Yes (Other)
  Sender: FDA-Public Use
  Company Number: PHHY2010JP65102

PATIENT
  Age: 70 Year
  Sex: Female

DRUGS (2)
  1. DIOVAN [Suspect]
     Indication: HYPERTENSION
     Dosage: 40 MG DAILY
     Route: 048
     Dates: start: 20100913, end: 20100920
  2. DIOVAN [Suspect]
     Indication: ATRIAL FIBRILLATION

REACTIONS (3)
  - ERYTHEMA [None]
  - PHOTOSENSITIVITY REACTION [None]
  - SWELLING FACE [None]
